FAERS Safety Report 15776639 (Version 1)
Quarter: 2018Q4

REPORT INFORMATION
  Report Type: Spontaneous
  Country: US (occurrence: US)
  Receive Date: 20181229
  Receipt Date: 20181229
  Transmission Date: 20190205
  Serious: Yes (Disabling)
  Sender: FDA-Public Use
  Company Number: None

PATIENT
  Age: 40 Year
  Sex: Female
  Weight: 57.6 kg

DRUGS (1)
  1. DULOXETINE HYDROCHLORIDE. [Suspect]
     Active Substance: DULOXETINE HYDROCHLORIDE
     Indication: FIBROMYALGIA
     Route: 048
     Dates: start: 20180515, end: 20181224

REACTIONS (7)
  - Paraesthesia [None]
  - Vomiting [None]
  - Nightmare [None]
  - Emotional disorder [None]
  - Nausea [None]
  - Dizziness [None]
  - Withdrawal syndrome [None]

NARRATIVE: CASE EVENT DATE: 20181229
